FAERS Safety Report 18167456 (Version 1)
Quarter: 2020Q3

REPORT INFORMATION
  Report Type: Spontaneous
  Country: US (occurrence: US)
  Receive Date: 20200818
  Receipt Date: 20200818
  Transmission Date: 20201103
  Serious: Yes (Hospitalization, Disabling)
  Sender: FDA-Public Use
  Company Number: None

PATIENT
  Age: 53 Year
  Sex: Female
  Weight: 54 kg

DRUGS (1)
  1. BLUMEN CLEAR ADVANCED HAND SANITIZER [Suspect]
     Active Substance: ALCOHOL
     Indication: COVID-19 PROPHYLAXIS
     Route: 061
     Dates: start: 20200616, end: 20200806

REACTIONS (14)
  - Blood pressure increased [None]
  - Vision blurred [None]
  - Photophobia [None]
  - Dizziness [None]
  - Blood pressure decreased [None]
  - Headache [None]
  - Heart rate irregular [None]
  - Disorientation [None]
  - Facial pain [None]
  - Dyspepsia [None]
  - Dyspnoea [None]
  - Chest pain [None]
  - Oesophageal pain [None]
  - Abdominal pain upper [None]

NARRATIVE: CASE EVENT DATE: 20200715
